FAERS Safety Report 17241704 (Version 1)
Quarter: 2020Q1

REPORT INFORMATION
  Report Type: Spontaneous
  Country: US (occurrence: US)
  Receive Date: 20200106
  Receipt Date: 20200106
  Transmission Date: 20200409
  Serious: Yes (Other)
  Sender: FDA-Public Use
  Company Number: None

PATIENT
  Age: 47 Year
  Sex: Female
  Weight: 45 kg

DRUGS (1)
  1. METRONIDAZOLE .75% G AND W LABS [Suspect]
     Active Substance: METRONIDAZOLE
     Indication: ROSACEA

REACTIONS (5)
  - Vertigo [None]
  - Dysuria [None]
  - Alcohol intolerance [None]
  - Nausea [None]
  - Headache [None]

NARRATIVE: CASE EVENT DATE: 20200101
